FAERS Safety Report 19559428 (Version 1)
Quarter: 2021Q3

REPORT INFORMATION
  Report Type: Spontaneous
  Country: US (occurrence: US)
  Receive Date: 20210715
  Receipt Date: 20210715
  Transmission Date: 20211014
  Serious: Yes (Disabling)
  Sender: FDA-Public Use
  Company Number: None

PATIENT
  Age: 33 Year
  Sex: Female
  Weight: 120.6 kg

DRUGS (1)
  1. NEUTROGENA BEACH DEFENSE SPF 70 [Suspect]
     Active Substance: AVOBENZONE\HOMOSALATE\OCTISALATE\OCTOCRYLENE
     Dosage: OTHER STRENGTH:ALL OVER SPRAY;QUANTITY:1 SPRAY(S);?
     Route: 061
     Dates: start: 20210623, end: 20210704

REACTIONS (1)
  - Application site rash [None]

NARRATIVE: CASE EVENT DATE: 20210704
